FAERS Safety Report 6003601-2 (Version None)
Quarter: 2008Q4

REPORT INFORMATION
  Report Type: 
  Country: None (occurrence: None)
  Receive Date: 20081216
  Receipt Date: 20081119
  Transmission Date: 20090506
  Serious: No
  Sender: FDA-Public Use
  Company Number: FR-PFIZER INC-2008151141

PATIENT

DRUGS (4)
  1. XALATAN [Suspect]
     Indication: OCULAR HYPERTENSION
     Dosage: 1 GTT, 1X/DAY
     Route: 047
  2. LOSARTAN POTASSIUM [Concomitant]
  3. PROPRANOLOL HYDROCHLORIDE [Concomitant]
  4. DRUG, UNSPECIFIED [Concomitant]

REACTIONS (6)
  - DARK CIRCLES UNDER EYES [None]
  - EAR DISORDER [None]
  - EYE DISCHARGE [None]
  - OCULAR HYPERAEMIA [None]
  - OROPHARYNGEAL PAIN [None]
  - VISUAL ACUITY REDUCED [None]
